FAERS Safety Report 10398060 (Version 1)
Quarter: 2014Q3

REPORT INFORMATION
  Report Type: Spontaneous
  Country: CA (occurrence: None)
  Receive Date: 20140818
  Receipt Date: 20140818
  Transmission Date: 20150326
  Serious: Yes (Other)
  Sender: FDA-Public Use
  Company Number: 2014AP003926

PATIENT
  Age: 39 Year
  Sex: Female

DRUGS (4)
  1. STRATTERA [Suspect]
     Active Substance: ATOMOXETINE HYDROCHLORIDE
     Indication: PRODUCT USED FOR UNKNOWN INDICATION
     Route: 048
  2. APO-PAROXETINE [Suspect]
     Active Substance: PAROXETINE\PAROXETINE HYDROCHLORIDE
     Indication: PRODUCT USED FOR UNKNOWN INDICATION
  3. NASONEX [Concomitant]
     Active Substance: MOMETASONE FUROATE
  4. TRIQUILAR28 (ETHINYLESTRADIOL, LEVONORGESTREL) [Concomitant]

REACTIONS (8)
  - Nausea [None]
  - Tension [None]
  - Depression [None]
  - Palpitations [None]
  - Dry mouth [None]
  - Anxiety [None]
  - Hot flush [None]
  - Dizziness [None]
